FAERS Safety Report 4380173-X (Version None)
Quarter: 2004Q2

REPORT INFORMATION
  Report Type: 
  Country: None (occurrence: None)
  Receive Date: 20040614
  Receipt Date: 20040504
  Transmission Date: 20050107
  Serious: No
  Sender: FDA-Public Use
  Company Number: M04-341-140

PATIENT
  Age: 85 Year
  Sex: Male

DRUGS (3)
  1. VELCADE [Suspect]
     Indication: MULTIPLE MYELOMA
     Dosage: INTRAVENOUS (NOT OTHERWISE SPECIFIED)
     Route: 042
     Dates: start: 20040331, end: 20040429
  2. ALLOPURINOL [Concomitant]
  3. NORVASC [Concomitant]

REACTIONS (2)
  - DIARRHOEA [None]
  - NASOPHARYNGITIS [None]
